FAERS Safety Report 18213337 (Version 1)
Quarter: 2020Q3

REPORT INFORMATION
  Report Type: Spontaneous
  Country: US (occurrence: US)
  Receive Date: 20200831
  Receipt Date: 20200831
  Transmission Date: 20201103
  Serious: Yes (Hospitalization, Other)
  Sender: FDA-Public Use
  Company Number: None

PATIENT
  Age: 73 Year
  Sex: Male

DRUGS (1)
  1. PIOGLITAONE (PIOGLITAZONE HCL 45MG TAB) [Suspect]
     Active Substance: PIOGLITAZONE HYDROCHLORIDE
     Indication: DIABETES MELLITUS
     Route: 048
     Dates: start: 20170815, end: 20200821

REACTIONS (5)
  - Transitional cell carcinoma [None]
  - Bladder wall calcification [None]
  - Calculus bladder [None]
  - Tumour invasion [None]
  - Bladder cancer [None]

NARRATIVE: CASE EVENT DATE: 20200603
